FAERS Safety Report 15859467 (Version 1)
Quarter: 2019Q1

REPORT INFORMATION
  Report Type: Spontaneous
  Country: US (occurrence: US)
  Receive Date: 20190123
  Receipt Date: 20190123
  Transmission Date: 20190417
  Serious: No
  Sender: FDA-Public Use
  Company Number: US-SA-2019SA017126

PATIENT

DRUGS (1)
  1. GOLD BOND MEDICATED CRACKED SKIN FILL AND PROTECT [Suspect]
     Active Substance: PETROLATUM
     Indication: SKIN FISSURES
     Dosage: UNK
     Route: 061
     Dates: start: 201812

REACTIONS (1)
  - Therapeutic response decreased [Unknown]
